FAERS Safety Report 5703882-6 (Version None)
Quarter: 2008Q2

REPORT INFORMATION
  Report Type: 
  Country: None (occurrence: None)
  Receive Date: 20080414
  Receipt Date: 20080407
  Transmission Date: 20081010
  Serious: Yes (Hospitalization)
  Sender: FDA-Public Use
  Company Number: FR-ELI_LILLY_AND_COMPANY-FR200804001501

PATIENT
  Sex: Female

DRUGS (5)
  1. ZYPREXA [Suspect]
     Indication: PSYCHOTIC DISORDER
     Dosage: 5 MG, DAILY (1/D)
     Route: 048
     Dates: start: 20080103, end: 20080208
  2. DEPAKOTE [Concomitant]
     Indication: PSYCHOTIC DISORDER
     Dosage: 250 MG, 3/D
     Route: 048
     Dates: start: 20080103, end: 20080129
  3. STABLON [Concomitant]
     Indication: PSYCHOTIC DISORDER
     Route: 048
     Dates: start: 20080103, end: 20080129
  4. RIVOTRIL [Concomitant]
     Indication: PSYCHOTIC DISORDER
     Dosage: 2.5 MG, DAILY (1/D)
     Route: 048
     Dates: start: 20080103
  5. NORSET [Concomitant]
     Dates: start: 20080201

REACTIONS (4)
  - EOSINOPHILIA [None]
  - PURPURA [None]
  - RASH MACULO-PAPULAR [None]
  - URINARY TRACT INFECTION [None]
